FAERS Safety Report 7369394 (Version 3)
Quarter: 2014Q1

REPORT INFORMATION
  Report Type: Spontaneous
  Country: US (occurrence: US)
  Receive Date: 20100428
  Receipt Date: 20140106
  Transmission Date: 20141002
  Serious: Yes (Hospitalization)
  Sender: FDA-Public Use
  Company Number: US-JNJFOC-20100405185

PATIENT
  Sex: Male
  Weight: 99.79 kg

DRUGS (12)
  1. DURAGESIC [Suspect]
     Indication: OSTEOARTHRITIS
     Route: 062
     Dates: start: 2000, end: 2001
  2. DURAGESIC [Suspect]
     Indication: PANCREATITIS
     Dosage: NDC NUMBER 50458-0094-05
     Route: 062
     Dates: start: 201004
  3. ATTENTION DEFICIT DISORDER MEDICATION [Concomitant]
     Route: 048
  4. ACIPHEX [Concomitant]
     Indication: GASTRIC DISORDER
     Route: 048
     Dates: start: 2000
  5. TOPAMAX [Concomitant]
     Indication: MIGRAINE
     Route: 048
     Dates: start: 2000
  6. AMOXICILLIN [Concomitant]
     Indication: ACNE
     Route: 048
     Dates: start: 2008
  7. ABILIFY [Concomitant]
     Indication: DEPRESSION
     Route: 048
     Dates: start: 200809
  8. CYMBALTA [Concomitant]
     Indication: PSYCHIATRIC SYMPTOM
     Route: 048
     Dates: start: 200909
  9. PAMELOR [Concomitant]
     Indication: DEPRESSION
     Route: 048
     Dates: start: 200909
  10. ATIVAN [Concomitant]
     Indication: ANXIETY
     Route: 048
     Dates: start: 200909
  11. VITAMINS AND MINERALS [Concomitant]
     Route: 048
  12. PANCREASE MT4 [Concomitant]
     Indication: PANCREATITIS
     Route: 048
     Dates: start: 2006

REACTIONS (7)
  - Pancreatitis [Recovered/Resolved]
  - Weight decreased [Not Recovered/Not Resolved]
  - Acne [Not Recovered/Not Resolved]
  - Depression [Not Recovered/Not Resolved]
  - Wrong technique in drug usage process [Recovered/Resolved]
  - Drug ineffective [Not Recovered/Not Resolved]
  - Product quality issue [Unknown]
